FAERS Safety Report 9789024 (Version 1)
Quarter: 2013Q4

REPORT INFORMATION
  Report Type: Spontaneous
  Country: US (occurrence: US)
  Receive Date: 20131230
  Receipt Date: 20131230
  Transmission Date: 20140711
  Serious: No
  Sender: FDA-Public Use
  Company Number: US-ASTRAZENECA-2013SE81308

PATIENT
  Sex: 0

DRUGS (3)
  1. BRILINTA [Suspect]
     Indication: DEVICE RELATED INFECTION
     Route: 048
  2. PLAVIX [Suspect]
     Route: 065
  3. EFFIENT [Suspect]
     Route: 065

REACTIONS (1)
  - Platelet function test abnormal [Unknown]
